FAERS Safety Report 9241276 (Version 1)
Quarter: 2013Q2

REPORT INFORMATION
  Report Type: Spontaneous
  Country: US (occurrence: US)
  Receive Date: 20130419
  Receipt Date: 20130419
  Transmission Date: 20140414
  Serious: No
  Sender: FDA-Public Use
  Company Number: US-009507513-1304USA006554

PATIENT
  Sex: 0
  Weight: 57.14 kg

DRUGS (2)
  1. NEXPLANON [Suspect]
     Dosage: 1 DF, UNK
     Route: 059
     Dates: start: 20130404, end: 20130404
  2. NEXPLANON [Suspect]
     Dosage: 1 DF, UNK
     Route: 059
     Dates: start: 20130404

REACTIONS (3)
  - Device difficult to use [Recovered/Resolved]
  - Device malfunction [Unknown]
  - No adverse event [Unknown]
